FAERS Safety Report 12927743 (Version 1)
Quarter: 2016Q4

REPORT INFORMATION
  Report Type: Spontaneous
  Country: US (occurrence: US)
  Receive Date: 20161110
  Receipt Date: 20161110
  Transmission Date: 20170207
  Serious: No
  Sender: FDA-Public Use
  Company Number: None

PATIENT
  Age: 45 Year
  Sex: Female
  Weight: 106.6 kg

DRUGS (20)
  1. TROSPIUM [Suspect]
     Active Substance: TROSPIUM
  2. MYRBETRIQ [Concomitant]
     Active Substance: MIRABEGRON
  3. TRAMADOL. [Concomitant]
     Active Substance: TRAMADOL
  4. FLONASE [Concomitant]
     Active Substance: FLUTICASONE PROPIONATE
  5. ATORVASTATIN [Concomitant]
     Active Substance: ATORVASTATIN
  6. ROBAXIN [Concomitant]
     Active Substance: METHOCARBAMOL
  7. REGLAN [Concomitant]
     Active Substance: METOCLOPRAMIDE HYDROCHLORIDE
  8. VESICARE [Suspect]
     Active Substance: SOLIFENACIN SUCCINATE
     Indication: MICTURITION URGENCY
     Route: 048
     Dates: start: 20131029, end: 20150629
  9. HUMALOG [Concomitant]
     Active Substance: INSULIN LISPRO
  10. ROPINIROLE. [Concomitant]
     Active Substance: ROPINIROLE
  11. ERGOCALCIFEROL. [Concomitant]
     Active Substance: ERGOCALCIFEROL
  12. VESICARE [Suspect]
     Active Substance: SOLIFENACIN SUCCINATE
     Indication: URINARY INCONTINENCE
     Route: 048
     Dates: start: 20131029, end: 20150629
  13. OXYBUTYNIN [Suspect]
     Active Substance: OXYBUTYNIN
     Dosage: 5-10MG TID
  14. LISINOPRIL. [Concomitant]
     Active Substance: LISINOPRIL
  15. SANCTURA XR [Suspect]
     Active Substance: TROSPIUM CHLORIDE
  16. OMEPRAZOLE. [Concomitant]
     Active Substance: OMEPRAZOLE
  17. VESICARE [Suspect]
     Active Substance: SOLIFENACIN SUCCINATE
     Indication: POLLAKIURIA
     Route: 048
     Dates: start: 20131029, end: 20150629
  18. FEXOFENADINE [Concomitant]
     Active Substance: FEXOFENADINE\FEXOFENADINE HYDROCHLORIDE
  19. HUMULIN NOS [Concomitant]
     Active Substance: INSULIN HUMAN
  20. TYLENOL [Concomitant]
     Active Substance: ACETAMINOPHEN

REACTIONS (1)
  - Constipation [None]

NARRATIVE: CASE EVENT DATE: 20140219
